FAERS Safety Report 6670361-1 (Version None)
Quarter: 2010Q2

REPORT INFORMATION
  Report Type: 
  Country: None (occurrence: None)
  Receive Date: 20100407
  Receipt Date: 20100331
  Transmission Date: 20101027
  Serious: Yes (Hospitalization)
  Sender: FDA-Public Use
  Company Number: US-BIOGENIDEC-2009BI020619

PATIENT
  Age: 52 Year
  Sex: Female

DRUGS (1)
  1. TYSABRI [Suspect]
     Indication: MULTIPLE SCLEROSIS
     Route: 042
     Dates: start: 20080708

REACTIONS (12)
  - COUGH [None]
  - DYSPNOEA [None]
  - FALL [None]
  - FATIGUE [None]
  - FIBULA FRACTURE [None]
  - FUNGAL INFECTION [None]
  - LARYNGEAL DISORDER [None]
  - LARYNGEAL STENOSIS [None]
  - ONYCHOCLASIS [None]
  - SUTURE RELATED COMPLICATION [None]
  - URINARY TRACT DISORDER [None]
  - URINARY TRACT INFECTION [None]
